FAERS Safety Report 24916302 (Version 3)
Quarter: 2025Q1

REPORT INFORMATION
  Report Type: Spontaneous
  Country: US (occurrence: US)
  Receive Date: 20250203
  Receipt Date: 20250304
  Transmission Date: 20250409
  Serious: Yes (Death)
  Sender: MYLAN
  Company Number: US-MYLANLABS-2025M1009542

PATIENT
  Age: 96 Year
  Sex: Female

DRUGS (52)
  1. XANAX [Suspect]
     Active Substance: ALPRAZOLAM
     Indication: Feeling of relaxation
  2. XANAX [Suspect]
     Active Substance: ALPRAZOLAM
     Indication: Sleep disorder
     Route: 065
  3. XANAX [Suspect]
     Active Substance: ALPRAZOLAM
     Route: 065
  4. XANAX [Suspect]
     Active Substance: ALPRAZOLAM
  5. VALIUM [Suspect]
     Active Substance: DIAZEPAM
     Indication: Product used for unknown indication
  6. VALIUM [Suspect]
     Active Substance: DIAZEPAM
     Route: 065
  7. VALIUM [Suspect]
     Active Substance: DIAZEPAM
     Route: 065
  8. VALIUM [Suspect]
     Active Substance: DIAZEPAM
  9. DIAZEPAM [Suspect]
     Active Substance: DIAZEPAM
     Indication: Product used for unknown indication
  10. DIAZEPAM [Suspect]
     Active Substance: DIAZEPAM
     Route: 065
  11. DIAZEPAM [Suspect]
     Active Substance: DIAZEPAM
     Route: 065
  12. DIAZEPAM [Suspect]
     Active Substance: DIAZEPAM
  13. AMBIEN [Suspect]
     Active Substance: ZOLPIDEM TARTRATE
     Indication: Somnolence
  14. AMBIEN [Suspect]
     Active Substance: ZOLPIDEM TARTRATE
     Indication: Feeling of relaxation
     Route: 065
  15. AMBIEN [Suspect]
     Active Substance: ZOLPIDEM TARTRATE
     Route: 065
  16. AMBIEN [Suspect]
     Active Substance: ZOLPIDEM TARTRATE
  17. SONATA [Suspect]
     Active Substance: ZALEPLON
     Indication: Product used for unknown indication
  18. SONATA [Suspect]
     Active Substance: ZALEPLON
     Route: 065
  19. SONATA [Suspect]
     Active Substance: ZALEPLON
     Route: 065
  20. SONATA [Suspect]
     Active Substance: ZALEPLON
  21. LUNESTA [Suspect]
     Active Substance: ESZOPICLONE
     Indication: Product used for unknown indication
  22. LUNESTA [Suspect]
     Active Substance: ESZOPICLONE
     Route: 065
  23. LUNESTA [Suspect]
     Active Substance: ESZOPICLONE
     Route: 065
  24. LUNESTA [Suspect]
     Active Substance: ESZOPICLONE
  25. ROZEREM [Suspect]
     Active Substance: RAMELTEON
     Indication: Product used for unknown indication
  26. ROZEREM [Suspect]
     Active Substance: RAMELTEON
     Route: 065
  27. ROZEREM [Suspect]
     Active Substance: RAMELTEON
     Route: 065
  28. ROZEREM [Suspect]
     Active Substance: RAMELTEON
  29. MELATONIN [Suspect]
     Active Substance: MELATONIN
     Indication: Product used for unknown indication
  30. MELATONIN [Suspect]
     Active Substance: MELATONIN
     Route: 065
  31. MELATONIN [Suspect]
     Active Substance: MELATONIN
     Route: 065
  32. MELATONIN [Suspect]
     Active Substance: MELATONIN
  33. ATIVAN [Suspect]
     Active Substance: LORAZEPAM
     Indication: Product used for unknown indication
  34. ATIVAN [Suspect]
     Active Substance: LORAZEPAM
     Route: 065
  35. ATIVAN [Suspect]
     Active Substance: LORAZEPAM
     Route: 065
  36. ATIVAN [Suspect]
     Active Substance: LORAZEPAM
  37. RESTORIL [Suspect]
     Active Substance: TEMAZEPAM
     Indication: Product used for unknown indication
  38. RESTORIL [Suspect]
     Active Substance: TEMAZEPAM
     Route: 065
  39. RESTORIL [Suspect]
     Active Substance: TEMAZEPAM
     Route: 065
  40. RESTORIL [Suspect]
     Active Substance: TEMAZEPAM
  41. METHOCARBAMOL [Suspect]
     Active Substance: METHOCARBAMOL
     Indication: Product used for unknown indication
  42. METHOCARBAMOL [Suspect]
     Active Substance: METHOCARBAMOL
     Route: 065
  43. METHOCARBAMOL [Suspect]
     Active Substance: METHOCARBAMOL
     Route: 065
  44. METHOCARBAMOL [Suspect]
     Active Substance: METHOCARBAMOL
  45. DIPHENHYDRAMINE [Suspect]
     Active Substance: DIPHENHYDRAMINE
     Indication: Product used for unknown indication
  46. DIPHENHYDRAMINE [Suspect]
     Active Substance: DIPHENHYDRAMINE
     Route: 065
  47. DIPHENHYDRAMINE [Suspect]
     Active Substance: DIPHENHYDRAMINE
     Route: 065
  48. DIPHENHYDRAMINE [Suspect]
     Active Substance: DIPHENHYDRAMINE
  49. ZOLPIDEM [Suspect]
     Active Substance: ZOLPIDEM TARTRATE
     Indication: Product used for unknown indication
  50. ZOLPIDEM [Suspect]
     Active Substance: ZOLPIDEM TARTRATE
     Route: 065
  51. ZOLPIDEM [Suspect]
     Active Substance: ZOLPIDEM TARTRATE
     Route: 065
  52. ZOLPIDEM [Suspect]
     Active Substance: ZOLPIDEM TARTRATE

REACTIONS (2)
  - Death [Fatal]
  - Off label use [Unknown]

NARRATIVE: CASE EVENT DATE: 20231029
